FAERS Safety Report 17540407 (Version 2)
Quarter: 2020Q3

REPORT INFORMATION
  Report Type: Spontaneous
  Country: US (occurrence: US)
  Receive Date: 20200313
  Receipt Date: 20200710
  Transmission Date: 20201102
  Serious: No
  Sender: FDA-Public Use
  Company Number: NVSC2020US067576

PATIENT
  Age: 31 Year
  Sex: Female

DRUGS (8)
  1. NOREPINEPHRINE. [Suspect]
     Active Substance: NOREPINEPHRINE
     Indication: MATERNAL EXPOSURE DURING PREGNANCY
  2. NIFEDIPINE. [Suspect]
     Active Substance: NIFEDIPINE
     Indication: MATERNAL EXPOSURE DURING PREGNANCY
     Dosage: 10 MG, OVER 30 MINTUES
     Route: 048
  3. INDOMETHACIN. [Suspect]
     Active Substance: INDOMETHACIN
     Indication: MATERNAL EXPOSURE DURING PREGNANCY
     Dosage: UNK
     Route: 065
  4. INDOMETHACIN. [Suspect]
     Active Substance: INDOMETHACIN
     Indication: TOCOLYSIS
  5. NIFEDIPINE. [Suspect]
     Active Substance: NIFEDIPINE
     Indication: PROPHYLAXIS
     Dosage: 20 MG, OVER 30 MIN
     Route: 048
  6. PHENYLEPHRINE [Suspect]
     Active Substance: PHENYLEPHRINE HYDROCHLORIDE
     Indication: PRODUCT USED FOR UNKNOWN INDICATION
     Dosage: UNK
     Route: 042
  7. PHENYLEPHRINE [Suspect]
     Active Substance: PHENYLEPHRINE HYDROCHLORIDE
     Indication: MATERNAL EXPOSURE DURING PREGNANCY
  8. NOREPINEPHRINE. [Suspect]
     Active Substance: NOREPINEPHRINE
     Indication: PROPHYLAXIS
     Route: 065

REACTIONS (1)
  - Maternal exposure during pregnancy [Unknown]
